FAERS Safety Report 7090082-3 (Version None)
Quarter: 2010Q4

REPORT INFORMATION
  Report Type: 
  Country: None (occurrence: None)
  Receive Date: 20101105
  Receipt Date: 20101105
  Transmission Date: 20110411
  Serious: Yes (Other)
  Sender: FDA-Public Use
  Company Number: None

PATIENT
  Sex: Male
  Weight: 86.1834 kg

DRUGS (2)
  1. HYDROXYZINE HCL [Suspect]
     Indication: RASH
     Dosage: 1 OR 120 6 HRS EVERY  ORAL (SUMMER TO NOW)
     Route: 048
  2. CETIRIZINE HCL [Suspect]
     Indication: RASH
     Dosage: 1 OR 30 24 HRS. EVERY ORAL (AUTUMN TO NOW)
     Route: 048

REACTIONS (1)
  - HALLUCINATION, AUDITORY [None]
